FAERS Safety Report 24456125 (Version 2)
Quarter: 2024Q4

REPORT INFORMATION
  Report Type: Report from Study
  Country: US (occurrence: US)
  Receive Date: 20241017
  Receipt Date: 20241018
  Transmission Date: 20250114
  Serious: No
  Sender: ROCHE
  Company Number: US-ROCHE-3502653

PATIENT
  Age: 39 Year
  Sex: Male

DRUGS (10)
  1. RITUXAN [Suspect]
     Active Substance: RITUXIMAB
     Indication: Granulomatosis with polyangiitis
     Route: 041
  2. ALBUTEROL [Concomitant]
     Active Substance: ALBUTEROL
  3. AMOXICILLIN [Concomitant]
     Active Substance: AMOXICILLIN
  4. LIPITOR [Concomitant]
     Active Substance: ATORVASTATIN CALCIUM
  5. LOSARTAN [Concomitant]
     Active Substance: LOSARTAN
  6. PREDNISONE [Concomitant]
     Active Substance: PREDNISONE
  7. GABAPENTIN [Concomitant]
     Active Substance: GABAPENTIN
  8. OMEGA 3 [Concomitant]
     Active Substance: CAPSAICIN
  9. ENDOCET [Concomitant]
     Active Substance: ACETAMINOPHEN\OXYCODONE HYDROCHLORIDE
  10. JARDIANCE [Concomitant]
     Active Substance: EMPAGLIFLOZIN

REACTIONS (2)
  - Off label use [Unknown]
  - No adverse event [Unknown]
